FAERS Safety Report 11263874 (Version 1)
Quarter: 2015Q3

REPORT INFORMATION
  Report Type: Spontaneous
  Country: US (occurrence: None)
  Receive Date: 20150709
  Receipt Date: 20150709
  Transmission Date: 20151125
  Serious: Yes (Hospitalization)
  Sender: FDA-Public Use
  Company Number: UCM201506-000432

PATIENT
  Age: 67 Year
  Sex: Female

DRUGS (9)
  1. ACETAMINOPHEN (ACETAMINOPHEN) (ACETAMINOPHEN) [Suspect]
     Active Substance: ACETAMINOPHEN
  2. TRAMADOL (TRAMADOL) (TRAMADOL) [Suspect]
     Active Substance: TRAMADOL
  3. OXYCODONE (OXYCODONE) (OXYCODONE) [Suspect]
     Active Substance: OXYCODONE
  4. BUSPIRONE (BUSPIRONE) (BUSPIRONE) [Suspect]
     Active Substance: BUSPIRONE HYDROCHLORIDE
  5. CAFFEINE (CAFFEINE) (CAFFEINE) [Suspect]
     Active Substance: CAFFEINE
  6. FLURAZEPAM [Suspect]
     Active Substance: FLURAZEPAM\FLURAZEPAM HYDROCHLORIDE
  7. IBUPROFEN (IBUPROFEN) (IBUPROFEN) [Suspect]
     Active Substance: IBUPROFEN
  8. TOPIRAMATE. [Suspect]
     Active Substance: TOPIRAMATE
  9. DIPHENHYDRAMINE (DIPHENHYDRAMINE) (DIPHENHYDRAMINE) [Suspect]
     Active Substance: DIPHENHYDRAMINE

REACTIONS (5)
  - Loss of consciousness [None]
  - Coma [None]
  - Cerebellar infarction [None]
  - Brain injury [None]
  - Intentional overdose [None]
